FAERS Safety Report 22527962 (Version 2)
Quarter: 2023Q2

REPORT INFORMATION
  Report Type: Spontaneous
  Country: JP (occurrence: JP)
  Receive Date: 20230606
  Receipt Date: 20230626
  Transmission Date: 20230722
  Serious: Yes (Other)
  Sender: FDA-Public Use
  Company Number: JP-002147023-NVSJ2023JP008866

PATIENT
  Age: 60 Year
  Sex: Female

DRUGS (11)
  1. SCEMBLIX [Suspect]
     Active Substance: ASCIMINIB HYDROCHLORIDE
     Indication: Chronic myeloid leukaemia
     Dosage: 80 MG
     Route: 048
     Dates: start: 202207
  2. SCEMBLIX [Suspect]
     Active Substance: ASCIMINIB HYDROCHLORIDE
     Dosage: 40 MG
     Route: 048
  3. SCEMBLIX [Suspect]
     Active Substance: ASCIMINIB HYDROCHLORIDE
     Dosage: 20 MG
     Route: 048
  4. TASIGNA [Suspect]
     Active Substance: NILOTINIB
     Indication: Chronic myeloid leukaemia
     Dosage: 600 MG
     Route: 065
     Dates: start: 202107
  5. TASIGNA [Suspect]
     Active Substance: NILOTINIB
     Dosage: 150 MG
     Route: 065
  6. TASIGNA [Suspect]
     Active Substance: NILOTINIB
     Dosage: 150 MG
     Route: 065
     Dates: end: 202110
  7. PONATINIB [Concomitant]
     Active Substance: PONATINIB
     Indication: Chronic myeloid leukaemia
     Dosage: 15 MG
     Route: 065
  8. PONATINIB [Concomitant]
     Active Substance: PONATINIB
     Dosage: 30 MG
     Route: 065
  9. PONATINIB [Concomitant]
     Active Substance: PONATINIB
     Dosage: 15 MG
     Route: 065
  10. PONATINIB [Concomitant]
     Active Substance: PONATINIB
     Dosage: 15 MG
     Route: 065
  11. PONATINIB [Concomitant]
     Active Substance: PONATINIB
     Dosage: 15 MG
     Route: 065

REACTIONS (1)
  - Full blood count decreased [Recovering/Resolving]

NARRATIVE: CASE EVENT DATE: 20210701
